FAERS Safety Report 15237327 (Version 1)
Quarter: 2018Q3

REPORT INFORMATION
  Report Type: Spontaneous
  Country: US (occurrence: US)
  Receive Date: 20180710
  Receipt Date: 20180710
  Transmission Date: 20181010
  Serious: No
  Sender: FDA-Public Use
  Company Number: None

PATIENT
  Age: 53 Year
  Sex: Female

DRUGS (18)
  1. AZATHIOPRINE. [Concomitant]
     Active Substance: AZATHIOPRINE
  2. URSODIOL. [Concomitant]
     Active Substance: URSODIOL
  3. VITAMIN D3 [Concomitant]
     Active Substance: CHOLECALCIFEROL
  4. DARIFENACIN. [Concomitant]
     Active Substance: DARIFENACIN
  5. PRAVASTATIN. [Concomitant]
     Active Substance: PRAVASTATIN
  6. IMURAN [Concomitant]
     Active Substance: AZATHIOPRINE
  7. RIFAMPIN. [Concomitant]
     Active Substance: RIFAMPIN
  8. CIPROFLOXACIN. [Concomitant]
     Active Substance: CIPROFLOXACIN
  9. IMITREX [Concomitant]
     Active Substance: SUMATRIPTAN SUCCINATE
  10. MYCOPHENOLAT [Concomitant]
     Active Substance: MYCOPHENOLATE MOFETIL
  11. PREDNISONE. [Concomitant]
     Active Substance: PREDNISONE
  12. SUMATRIPTAN. [Concomitant]
     Active Substance: SUMATRIPTAN
  13. OCALIVA [Suspect]
     Active Substance: OBETICHOLIC ACID
     Indication: PRIMARY BILIARY CHOLANGITIS
     Route: 048
     Dates: start: 20180425
  14. CALCIUM [Concomitant]
     Active Substance: CALCIUM
  15. OMEGA?3 ACIDS [Concomitant]
     Active Substance: OMEGA-3 FATTY ACIDS
  16. CELLCEPT [Concomitant]
     Active Substance: MYCOPHENOLATE MOFETIL\MYCOPHENOLATE MOFETIL HYDROCHLORIDE
  17. EXCEDRIN [Concomitant]
     Active Substance: ACETAMINOPHEN\ASPIRIN\CAFFEINE
  18. MAG OXIDE [Concomitant]
     Active Substance: MAGNESIUM OXIDE

REACTIONS (1)
  - Pruritus [None]
